FAERS Safety Report 8091489-8 (Version None)
Quarter: 2012Q1

REPORT INFORMATION
  Report Type: 
  Country: None (occurrence: None)
  Receive Date: 20120129
  Receipt Date: 20111106
  Transmission Date: 20120608
  Serious: No
  Sender: FDA-Public Use
  Company Number: US-ABBOTT-11P-163-0871593-00

PATIENT
  Age: 58 Year
  Sex: Female

DRUGS (20)
  1. APRIZO [Concomitant]
     Indication: PRODUCT USED FOR UNKNOWN INDICATION
  2. POMEGRANATE JUICE [Concomitant]
     Indication: PRODUCT USED FOR UNKNOWN INDICATION
  3. AMBIEN [Concomitant]
     Indication: INSOMNIA
     Dosage: ONE DAILY AT BEDTIME
  4. FOLIC ACID [Concomitant]
     Indication: PRODUCT USED FOR UNKNOWN INDICATION
  5. ONE A DAY [Concomitant]
     Indication: PRODUCT USED FOR UNKNOWN INDICATION
  6. COQ10 [Concomitant]
     Indication: PRODUCT USED FOR UNKNOWN INDICATION
  7. PREVACID [Concomitant]
     Indication: PRODUCT USED FOR UNKNOWN INDICATION
  8. VITAMIN B-12 [Concomitant]
     Indication: PRODUCT USED FOR UNKNOWN INDICATION
  9. FISH OIL [Concomitant]
     Indication: PRODUCT USED FOR UNKNOWN INDICATION
  10. EXALON [Concomitant]
     Indication: MEMORY IMPAIRMENT
     Dosage: PATCH DAILY
  11. D3 [Concomitant]
     Indication: PRODUCT USED FOR UNKNOWN INDICATION
  12. ENTOCORT EC [Concomitant]
     Indication: PRODUCT USED FOR UNKNOWN INDICATION
  13. NAMENDA [Concomitant]
     Indication: MEMORY IMPAIRMENT
  14. LAMICTAL [Concomitant]
     Indication: PRODUCT USED FOR UNKNOWN INDICATION
     Dosage: 100 MG - 1/2 TABLET TWICE DAILY
  15. IRON [Concomitant]
     Indication: PRODUCT USED FOR UNKNOWN INDICATION
  16. GREEN TEA [Concomitant]
     Indication: PRODUCT USED FOR UNKNOWN INDICATION
  17. HUMIRA [Suspect]
     Indication: CROHN'S DISEASE
     Dates: start: 20110811
  18. ABILIFY [Concomitant]
     Indication: DEPRESSION
  19. XANAX [Concomitant]
     Indication: ANXIETY
     Dosage: 1 MG - ONE THREE TIMES DAILY AS NEEDED
  20. VIT E [Concomitant]
     Indication: PRODUCT USED FOR UNKNOWN INDICATION

REACTIONS (2)
  - CROHN'S DISEASE [None]
  - DIARRHOEA [None]
